FAERS Safety Report 4286651-6 (Version None)
Quarter: 2004Q1

REPORT INFORMATION
  Report Type: 
  Country: None (occurrence: None)
  Receive Date: 20040204
  Receipt Date: 20040119
  Transmission Date: 20041129
  Serious: Yes (Hospitalization)
  Sender: FDA-Public Use
  Company Number: 2004-DE-00323GD

PATIENT
  Age: 47 Year
  Sex: Male

DRUGS (8)
  1. METHOTREXATE [Suspect]
     Indication: NON-HODGKIN'S LYMPHOMA
     Dosage: 15 MG (NR), IT
     Dates: start: 20010401
  2. CYCLOPHOSPHAMIDE [Suspect]
     Indication: NON-HODGKIN'S LYMPHOMA
     Dosage: 1200 MG/M2 DAY 1
     Dates: start: 20010401
  3. DOXORUBICIN HCL [Suspect]
     Indication: NON-HODGKIN'S LYMPHOMA
     Dosage: 75 MG/M2 DAY 1
     Dates: start: 20010401
  4. VINDESINE (VINDESINE) [Suspect]
     Indication: NON-HODGKIN'S LYMPHOMA
     Dosage: 2 MG/M2 DAYS 1 AND 5
     Dates: start: 20010401
  5. BLEOMYCIN [Suspect]
     Indication: NON-HODGKIN'S LYMPHOMA
     Dosage: 10 MG
     Dates: start: 20010401
  6. PREDNISOLONE [Suspect]
     Indication: NON-HODGKIN'S LYMPHOMA
     Dosage: 60 MG/M2 DAYS 1 TO 5
     Dates: start: 20010401
  7. FILGRASTIM (FILGRASTIM) [Suspect]
     Indication: NON-HODGKIN'S LYMPHOMA
     Dates: start: 20010401
  8. NICARDIPINE (NICARDIPINE) [Concomitant]

REACTIONS (8)
  - ACUTE RESPIRATORY DISTRESS SYNDROME [None]
  - BLOOD PH INCREASED [None]
  - BODY TEMPERATURE INCREASED [None]
  - DRUG INEFFECTIVE [None]
  - HAEMATOCRIT DECREASED [None]
  - HAEMOGLOBIN DECREASED [None]
  - LEUKOPENIA [None]
  - PNEUMONITIS [None]
